FAERS Safety Report 25275086 (Version 1)
Quarter: 2025Q2

REPORT INFORMATION
  Report Type: Spontaneous
  Country: US (occurrence: US)
  Receive Date: 20250506
  Receipt Date: 20250506
  Transmission Date: 20250716
  Serious: Yes (Other)
  Sender: ELI LILLY AND COMPANY
  Company Number: US-ELI_LILLY_AND_COMPANY-US202504023318

PATIENT
  Age: 55 Year
  Sex: Female

DRUGS (2)
  1. OLUMIANT [Interacting]
     Active Substance: BARICITINIB
     Indication: Alopecia areata
     Route: 065
  2. ESTROGENS [Interacting]
     Active Substance: ESTROGENS
     Indication: Menopause
     Route: 065

REACTIONS (2)
  - Drug interaction [Recovered/Resolved]
  - Pulmonary embolism [Recovered/Resolved]
